FAERS Safety Report 6010817-8 (Version None)
Quarter: 2008Q4

REPORT INFORMATION
  Report Type: 
  Country: None (occurrence: None)
  Receive Date: 20081218
  Receipt Date: 20081215
  Transmission Date: 20090506
  Serious: Yes (Life-Threatening, Hospitalization)
  Sender: FDA-Public Use
  Company Number: PHEH2008US10695

PATIENT
  Age: 47 Year
  Sex: Female

DRUGS (5)
  1. TRILEPTAL [Suspect]
     Indication: PARTIAL SEIZURES
     Dosage: 900 MG, BID
     Route: 048
     Dates: start: 20080101
  2. OXCARBAZEPINE [Suspect]
     Indication: PARTIAL SEIZURES
     Dosage: 900 MG, BID
     Dates: end: 20081101
  3. KEPPRA [Suspect]
     Indication: PARTIAL SEIZURES
     Dosage: 1500 MG, BID
  4. MUSCLE RELAXANTS [Suspect]
     Indication: BACK PAIN
     Dosage: UNK
     Dates: end: 20081101
  5. ANALGESICS [Suspect]
     Indication: BACK PAIN
     Dosage: UNK
     Dates: end: 20081101

REACTIONS (18)
  - ALANINE AMINOTRANSFERASE INCREASED [None]
  - ASPARTATE AMINOTRANSFERASE INCREASED [None]
  - BLOOD CREATININE INCREASED [None]
  - CEREBROVASCULAR ACCIDENT [None]
  - COMPUTERISED TOMOGRAM ABNORMAL [None]
  - CONVULSION [None]
  - DIALYSIS [None]
  - HYPOTHERMIA [None]
  - HYPOXIA [None]
  - LIVER DISORDER [None]
  - MECHANICAL VENTILATION [None]
  - MENTAL STATUS CHANGES [None]
  - MULTIPLE DRUG OVERDOSE [None]
  - RENAL FAILURE [None]
  - RESPIRATORY FAILURE [None]
  - RHABDOMYOLYSIS [None]
  - TREATMENT NONCOMPLIANCE [None]
  - UNRESPONSIVE TO STIMULI [None]
